FAERS Safety Report 9714676 (Version 4)
Quarter: 2014Q2

REPORT INFORMATION
  Report Type: Spontaneous
  Country: US (occurrence: US)
  Receive Date: 20131126
  Receipt Date: 20140408
  Transmission Date: 20141212
  Serious: Yes (Death, Hospitalization)
  Sender: FDA-Public Use
  Company Number: US-BAXTER-2013BAX046506

PATIENT
  Sex: Male

DRUGS (5)
  1. DIANEAL LOW CALCIUM [Suspect]
     Indication: RENAL FAILURE CHRONIC
     Route: 033
     Dates: start: 20100629, end: 20140306
  2. DIANEAL LOW CALCIUM [Suspect]
     Indication: PERITONEAL DIALYSIS
  3. DIANEAL LOW CALCIUM [Suspect]
     Indication: RENAL FAILURE CHRONIC
     Route: 033
     Dates: start: 201005, end: 20140306
  4. EXTRANEAL [Suspect]
     Indication: RENAL FAILURE CHRONIC
     Route: 033
     Dates: start: 20100629, end: 20140306
  5. EXTRANEAL [Suspect]
     Indication: PERITONEAL DIALYSIS

REACTIONS (6)
  - Sepsis [Fatal]
  - Infection [Fatal]
  - Abscess limb [Fatal]
  - Surgical failure [Fatal]
  - Diabetic vascular disorder [Not Recovered/Not Resolved]
  - Wound [Not Recovered/Not Resolved]
